FAERS Safety Report 6122386-2 (Version None)
Quarter: 2009Q1

REPORT INFORMATION
  Report Type: 
  Country: None (occurrence: None)
  Receive Date: 20090318
  Receipt Date: 20090121
  Transmission Date: 20090719
  Serious: No
  Sender: FDA-Public Use
  Company Number: US-ASTRAZENECA-2009UW01675

PATIENT
  Sex: Male

DRUGS (1)
  1. SYMBICORT [Suspect]
     Dosage: UNKNOWN
     Route: 055

REACTIONS (1)
  - ORTHODONTIC APPLIANCE COMPLICATION [None]
